FAERS Safety Report 19581212 (Version 1)
Quarter: 2021Q3

REPORT INFORMATION
  Report Type: Spontaneous
  Country: US (occurrence: US)
  Receive Date: 20210717
  Receipt Date: 20210717
  Transmission Date: 20211014
  Serious: Yes (Death, Hospitalization)
  Sender: FDA-Public Use
  Company Number: None

PATIENT
  Age: 68 Year
  Sex: Female
  Weight: 112.7 kg

DRUGS (2)
  1. DAUNORUBICIN [Suspect]
     Active Substance: DAUNORUBICIN
     Dates: end: 20210625
  2. CYTARABINE. [Suspect]
     Active Substance: CYTARABINE
     Dates: end: 20210626

REACTIONS (6)
  - Transient ischaemic attack [None]
  - Grimacing [None]
  - Vision blurred [None]
  - Cerebrovascular accident [None]
  - Agitation [None]
  - Gait disturbance [None]

NARRATIVE: CASE EVENT DATE: 20210701
